FAERS Safety Report 23750717 (Version 1)
Quarter: 2024Q2

REPORT INFORMATION
  Report Type: Spontaneous
  Country: US (occurrence: US)
  Receive Date: 20240417
  Receipt Date: 20240417
  Transmission Date: 20240717
  Serious: Yes (Other)
  Sender: FDA-Public Use
  Company Number: US-002147023-NVSC2024US078048

PATIENT
  Age: 50 Year
  Sex: Female

DRUGS (2)
  1. LETROZOLE [Suspect]
     Active Substance: LETROZOLE
     Indication: Ovarian granulosa cell tumour
     Dosage: 2.5 MG, QD(FOR ALL 28-DAYS OF THE 28-DAY CYCLE)
     Route: 048
  2. PALBOCICLIB [Suspect]
     Active Substance: PALBOCICLIB
     Indication: Ovarian granulosa cell tumour
     Dosage: 125 MG (FOR DAYS 1-21 FOR EACH 28-DAY CYCLE)
     Route: 048

REACTIONS (2)
  - Neutropenia [Unknown]
  - Toxicity to various agents [Unknown]
